FAERS Safety Report 12740492 (Version 1)
Quarter: 2016Q3

REPORT INFORMATION
  Report Type: Spontaneous
  Country: US (occurrence: US)
  Receive Date: 20160913
  Receipt Date: 20160913
  Transmission Date: 20161109
  Serious: No
  Sender: FDA-Public Use
  Company Number: US-AMGEN-USASP2016116179

PATIENT
  Age: 60 Year
  Sex: Female

DRUGS (1)
  1. ENBREL [Suspect]
     Active Substance: ETANERCEPT
     Indication: RHEUMATOID ARTHRITIS
     Dosage: UNK UNK, QWK
     Route: 065
     Dates: start: 2016

REACTIONS (6)
  - Injection site erythema [Unknown]
  - Therapeutic response unexpected [Unknown]
  - Injection site extravasation [Unknown]
  - Injection site pruritus [Unknown]
  - Injection site bruising [Unknown]
  - Injection site warmth [Unknown]

NARRATIVE: CASE EVENT DATE: 2016
